FAERS Safety Report 9278929 (Version 2)
Quarter: 2013Q3

REPORT INFORMATION
  Report Type: Spontaneous
  Country: BR (occurrence: BR)
  Receive Date: 20130508
  Receipt Date: 20130705
  Transmission Date: 20140515
  Serious: Yes (Hospitalization, Disabling)
  Sender: FDA-Public Use
  Company Number: BR-ASTRAZENECA-2013SE30194

PATIENT
  Age: 85 Year
  Sex: Male
  Weight: 60 kg

DRUGS (3)
  1. CASODEX [Suspect]
     Indication: PROSTATIC SPECIFIC ANTIGEN ABNORMAL
     Route: 048
     Dates: start: 2007
  2. ZOLADEX LA [Suspect]
     Indication: PROSTATE CANCER
     Route: 058
     Dates: start: 2007
  3. INSULIN [Concomitant]
     Indication: DIABETES MELLITUS

REACTIONS (5)
  - Skin discolouration [Recovered/Resolved]
  - Urinary tract infection [Recovered/Resolved]
  - Renal failure [Recovered/Resolved]
  - Wound [Recovering/Resolving]
  - Weight decreased [Not Recovered/Not Resolved]
